FAERS Safety Report 20719167 (Version 2)
Quarter: 2022Q4

REPORT INFORMATION
  Report Type: Report from Study
  Country: US (occurrence: US)
  Receive Date: 20220418
  Receipt Date: 20221121
  Transmission Date: 20230113
  Serious: Yes (Other)
  Sender: FDA-Public Use
  Company Number: US-INSMED, INC.-2021-09301-US

PATIENT
  Sex: Male

DRUGS (4)
  1. ARIKAYCE [Suspect]
     Active Substance: AMIKACIN
     Indication: Mycobacterial infection
     Dosage: 590 MILLIGRAM, QD
     Route: 055
     Dates: start: 202102, end: 2021
  2. ARIKAYCE [Suspect]
     Active Substance: AMIKACIN
     Dosage: 590 MILLIGRAM, TIW
     Route: 055
     Dates: start: 2021
  3. ARIKAYCE [Suspect]
     Active Substance: AMIKACIN
     Dosage: 590 MILLIGRAM, QOD
     Route: 055
  4. ARIKAYCE [Suspect]
     Active Substance: AMIKACIN
     Dosage: 590 MILLIGRAM, TIW
     Route: 055

REACTIONS (4)
  - Renal failure [Unknown]
  - Blood creatinine increased [Unknown]
  - Renal impairment [Unknown]
  - Off label use [Unknown]

NARRATIVE: CASE EVENT DATE: 20210101
